FAERS Safety Report 6209892-7 (Version None)
Quarter: 2009Q2

REPORT INFORMATION
  Report Type: 
  Country: None (occurrence: None)
  Receive Date: 20090527
  Receipt Date: 20090515
  Transmission Date: 20091009
  Serious: Yes (Other)
  Sender: FDA-Public Use
  Company Number: GXKR2009DE05514

PATIENT
  Age: 23 Year
  Sex: Male
  Weight: 70 kg

DRUGS (5)
  1. TRAMADOL HCL [Suspect]
     Indication: BACK PAIN
     Dosage: 200 MG, DAILY, ORAL
     Route: 048
     Dates: start: 20081113
  2. TRAMADOL HCL [Suspect]
     Indication: DEPRESSION
     Dosage: 200 MG, DAILY, ORAL
     Route: 048
     Dates: start: 20081113
  3. CITALOPRAM HYDROBROMIDE [Suspect]
     Indication: BACK PAIN
     Dosage: 40-60 MG, ORAL
     Route: 048
     Dates: start: 20081113
  4. CITALOPRAM HYDROBROMIDE [Suspect]
     Indication: DEPRESSION
     Dosage: 40-60 MG, ORAL
     Route: 048
     Dates: start: 20081113
  5. LORAZEPAM [Concomitant]

REACTIONS (4)
  - ALTERED STATE OF CONSCIOUSNESS [None]
  - AMNESIA [None]
  - PERSONALITY DISORDER [None]
  - PSYCHOTIC DISORDER [None]
